FAERS Safety Report 22014654 (Version 1)
Quarter: 2023Q1

REPORT INFORMATION
  Report Type: Spontaneous
  Country: US (occurrence: US)
  Receive Date: 20230221
  Receipt Date: 20230221
  Transmission Date: 20230418
  Serious: No
  Sender: FDA-Public Use
  Company Number: US-ELI_LILLY_AND_COMPANY-US202302003983

PATIENT
  Age: 53 Year
  Sex: Female

DRUGS (6)
  1. TRULICITY [Suspect]
     Active Substance: DULAGLUTIDE
     Indication: Diabetes mellitus
     Dosage: 3 MG, UNKNOWN
     Route: 065
  2. ENTRESTO [Concomitant]
     Active Substance: SACUBITRIL\VALSARTAN
     Indication: Product used for unknown indication
  3. XARELTO [Concomitant]
     Active Substance: RIVAROXABAN
     Indication: Body mass index
  4. NOVOLOG [Concomitant]
     Active Substance: INSULIN ASPART
     Indication: Product used for unknown indication
  5. TOUJEO [Concomitant]
     Active Substance: INSULIN GLARGINE
     Indication: Product used for unknown indication
  6. COVID-19 VACCINE [Concomitant]
     Indication: Product used for unknown indication

REACTIONS (6)
  - Injection site pain [Unknown]
  - Injection site haemorrhage [Unknown]
  - Aggression [Unknown]
  - Weight decreased [Unknown]
  - Muscle spasms [Unknown]
  - Injection site swelling [Unknown]

NARRATIVE: CASE EVENT DATE: 20220401
